APPROVED DRUG PRODUCT: METAPROTERENOL SULFATE
Active Ingredient: METAPROTERENOL SULFATE
Strength: 5%
Dosage Form/Route: SOLUTION;INHALATION
Application: A070805 | Product #001
Applicant: DEY LP
Approved: Aug 17, 1987 | RLD: No | RS: No | Type: DISCN